FAERS Safety Report 17767974 (Version 3)
Quarter: 2021Q2

REPORT INFORMATION
  Report Type: Report from Study
  Country: GT (occurrence: GT)
  Receive Date: 20200511
  Receipt Date: 20210517
  Transmission Date: 20210716
  Serious: Yes (Other)
  Sender: FDA-Public Use
  Company Number: PHHY2016GT025148

PATIENT
  Age: 73 Year
  Sex: Female
  Weight: 73.02 kg

DRUGS (5)
  1. EXFORGE [Suspect]
     Active Substance: AMLODIPINE BESYLATE\VALSARTAN
     Dosage: 1 DF (5 MG/160 MG)
     Route: 065
     Dates: start: 2019
  2. EXFORGE [Suspect]
     Active Substance: AMLODIPINE BESYLATE\VALSARTAN
     Dosage: 5/ 320 MG, (STARTED: APPROX 11 YEARS AGO; STOPPED: APPROX. 2 YEARS AGO)
     Route: 065
  3. EXFORGE [Suspect]
     Active Substance: AMLODIPINE BESYLATE\VALSARTAN
     Indication: HYPERTENSION
     Dosage: 1 DF (5 MG/320 MG)
     Route: 065
     Dates: start: 2009, end: 2019
  4. EXFORGE [Suspect]
     Active Substance: AMLODIPINE BESYLATE\VALSARTAN
     Dosage: UNK
     Route: 065
     Dates: start: 20160209
  5. EXFORGE [Suspect]
     Active Substance: AMLODIPINE BESYLATE\VALSARTAN
     Dosage: 160/ 5 MG, (STARTED: 2 YEARS AGO)
     Route: 065

REACTIONS (15)
  - Poisoning [Unknown]
  - Incorrect dose administered [Unknown]
  - Musculoskeletal chest pain [Unknown]
  - Hypotension [Unknown]
  - Product dose omission issue [Unknown]
  - Pain [Unknown]
  - Gastrooesophageal reflux disease [Unknown]
  - Myocardial ischaemia [Recovered/Resolved]
  - Blood cholesterol increased [Recovered/Resolved]
  - Gait disturbance [Unknown]
  - Angina pectoris [Recovered/Resolved]
  - Feeling abnormal [Unknown]
  - Plantar fasciitis [Unknown]
  - Memory impairment [Unknown]
  - Blood cholesterol abnormal [Unknown]

NARRATIVE: CASE EVENT DATE: 2009
